FAERS Safety Report 26035701 (Version 1)
Quarter: 2025Q4

REPORT INFORMATION
  Report Type: Spontaneous
  Country: US (occurrence: US)
  Receive Date: 20251112
  Receipt Date: 20251112
  Transmission Date: 20260118
  Serious: Yes (Other)
  Sender: ELI LILLY AND COMPANY
  Company Number: US-ELI_LILLY_AND_COMPANY-US202511000299

PATIENT
  Age: 51 Year
  Sex: Female

DRUGS (1)
  1. DULOXETINE HYDROCHLORIDE [Suspect]
     Active Substance: DULOXETINE HYDROCHLORIDE
     Indication: Fibromyalgia
     Dosage: 40 MG, UNKNOWN
     Route: 048

REACTIONS (6)
  - Self-injurious ideation [Unknown]
  - Suicidal ideation [Unknown]
  - Cerebral disorder [Unknown]
  - Depression [Unknown]
  - Drug ineffective [Recovered/Resolved]
  - Drug hypersensitivity [Unknown]
